FAERS Safety Report 13097359 (Version 1)
Quarter: 2017Q1

REPORT INFORMATION
  Report Type: Spontaneous
  Country: US (occurrence: US)
  Receive Date: 20170109
  Receipt Date: 20170109
  Transmission Date: 20170428
  Serious: No
  Sender: FDA-Public Use
  Company Number: US-LEHIGH_VALLEY-USA-POI0580201600105

PATIENT
  Age: 63 Year
  Sex: Female

DRUGS (2)
  1. POTASSIUM CHLORIDE ORAL SOLUTION [Suspect]
     Active Substance: POTASSIUM CHLORIDE
     Indication: ELECTROLYTE SUBSTITUTION THERAPY
     Dosage: 15 ML IN HALF A GLASS OF WATER QD
     Dates: start: 20160816, end: 20160820
  2. FUROSEMIDE. [Concomitant]
     Active Substance: FUROSEMIDE

REACTIONS (1)
  - Lip exfoliation [Recovered/Resolved]

NARRATIVE: CASE EVENT DATE: 20160820
